FAERS Safety Report 4866581-9 (Version None)
Quarter: 2005Q4

REPORT INFORMATION
  Report Type: 
  Country: None (occurrence: None)
  Receive Date: 20051221
  Receipt Date: 20051207
  Transmission Date: 20060501
  Serious: No
  Sender: FDA-Public Use
  Company Number: DSA_60512_2005

PATIENT
  Age: 40 Year
  Sex: Female
  Weight: 102.5129 kg

DRUGS (5)
  1. MIGRANAL [Suspect]
     Indication: MIGRAINE
     Dosage: 1 DF PRN IN
     Dates: start: 20050901
  2. MIGRANAL [Suspect]
     Indication: MIGRAINE
     Dosage: 1 DF PRN IN
     Dates: start: 20050816, end: 20050901
  3. ZOCOR [Concomitant]
  4. CYMBALTA [Concomitant]
  5. PRILOSEC [Concomitant]

REACTIONS (4)
  - BURNING SENSATION [None]
  - PHARMACEUTICAL PRODUCT COMPLAINT [None]
  - SELF-MEDICATION [None]
  - THROAT TIGHTNESS [None]
